FAERS Safety Report 20381138 (Version 1)
Quarter: 2022Q1

REPORT INFORMATION
  Report Type: Spontaneous
  Country: US (occurrence: US)
  Receive Date: 20220127
  Receipt Date: 20220127
  Transmission Date: 20220423
  Serious: No
  Sender: FDA-Public Use
  Company Number: US-CADILA HEALTHCARE LIMITED-US-ZYDUS-073563

PATIENT

DRUGS (2)
  1. COLESEVELAM [Suspect]
     Active Substance: COLESEVELAM
     Indication: Blood cholesterol increased
     Dosage: UNK
     Route: 065
  2. OCALIVA [Suspect]
     Active Substance: OBETICHOLIC ACID
     Indication: Primary biliary cholangitis
     Dosage: 5 MILLIGRAM, QD
     Route: 048
     Dates: start: 202109

REACTIONS (4)
  - Dry skin [Recovered/Resolved]
  - Condition aggravated [Recovering/Resolving]
  - Pruritus [None]
  - Product dose omission issue [Recovered/Resolved]

NARRATIVE: CASE EVENT DATE: 20210101
